FAERS Safety Report 6052078-X (Version None)
Quarter: 2009Q1

REPORT INFORMATION
  Report Type: 
  Country: None (occurrence: None)
  Receive Date: 20090126
  Receipt Date: 20090115
  Transmission Date: 20090719
  Serious: Yes (Hospitalization)
  Sender: FDA-Public Use
  Company Number: TW-ROXANE LABORATORIES, INC.-2009-RO-00070RO

PATIENT
  Age: 49 Year
  Sex: Female

DRUGS (8)
  1. CYCLOPHOSPHAMIDE [Suspect]
     Indication: NEPHRITIS
  2. CYCLOPHOSPHAMIDE [Suspect]
     Indication: IMMUNOSUPPRESSANT DRUG THERAPY
  3. METHYLPREDNISOLONE [Suspect]
     Indication: LUPUS VASCULITIS
     Dosage: 48MG
     Route: 042
  4. METHYLPREDNISOLONE [Suspect]
     Indication: IMMUNOSUPPRESSANT DRUG THERAPY
  5. METHYLPREDNISOLONE [Suspect]
     Indication: NEPHRITIS
  6. PREDNISOLONE [Suspect]
     Dosage: 5MG
  7. ASACOL [Concomitant]
  8. PREDNISOLONE [Concomitant]
     Dosage: 20MG

REACTIONS (3)
  - CROHN'S DISEASE [None]
  - HYPOVOLAEMIC SHOCK [None]
  - LOWER GASTROINTESTINAL HAEMORRHAGE [None]
